FAERS Safety Report 8294168-7 (Version None)
Quarter: 2012Q2

REPORT INFORMATION
  Report Type: 
  Country: None (occurrence: None)
  Receive Date: 20120418
  Receipt Date: 20120412
  Transmission Date: 20120825
  Serious: Yes (Hospitalization, Other)
  Sender: FDA-Public Use
  Company Number: PHHY2011DE95885

PATIENT
  Sex: Male
  Weight: 73 kg

DRUGS (11)
  1. CALCIUM CHANNEL BLOCKERS [Concomitant]
     Dates: start: 20101006
  2. PLATELET AGGREGATION INHIBITORS [Concomitant]
  3. INSULIN [Concomitant]
     Indication: DIABETES MELLITUS
  4. PLAVIX [Concomitant]
     Indication: PERIPHERAL ARTERIAL OCCLUSIVE DISEASE
     Dosage: 75 MG, QD
     Route: 048
     Dates: start: 20101006
  5. DIURETICS [Concomitant]
     Dates: start: 20101019
  6. DIOVAN [Suspect]
     Indication: HYPERTENSION
     Dosage: 320 MG, QD
     Route: 048
     Dates: start: 20101005
  7. AMLODIPINE [Concomitant]
     Indication: HYPERTENSION
     Dosage: 5 MG, QD
     Route: 048
     Dates: start: 20101110
  8. RASILEZ [Suspect]
     Indication: HYPERTENSION
     Dosage: 300 MG, QD
     Route: 048
     Dates: start: 20101006
  9. SIMVASTATIN [Concomitant]
     Indication: HYPERCHOLESTEROLAEMIA
     Dosage: 40 MG, QD
     Route: 048
     Dates: start: 20101006
  10. METOPROLOL TARTRATE [Concomitant]
     Indication: HYPERTENSION
     Dosage: 95 MG, QD
     Route: 048
     Dates: start: 20100202
  11. BETA BLOCKING AGENTS [Concomitant]
     Dates: start: 20101124

REACTIONS (4)
  - HAEMOGLOBIN DECREASED [None]
  - BLOOD CREATININE INCREASED [None]
  - GLYCOSYLATED HAEMOGLOBIN INCREASED [None]
  - CEREBROVASCULAR ACCIDENT [None]
